FAERS Safety Report 4357224-1 (Version None)
Quarter: 2004Q2

REPORT INFORMATION
  Report Type: 
  Country: None (occurrence: None)
  Receive Date: 20040507
  Receipt Date: 20040420
  Transmission Date: 20050107
  Serious: Yes (Hospitalization, Other)
  Sender: FDA-Public Use
  Company Number: US_010463708

PATIENT
  Age: 55 Year
  Sex: Female
  Weight: 87 kg

DRUGS (5)
  1. HUMULIN 70/30 [Suspect]
     Indication: DIABETES MELLITUS
     Dosage: 20 U/2 DAY
     Dates: start: 19910101
  2. HUMULIN R [Suspect]
     Indication: DIABETES MELLITUS
     Dates: start: 19910101
  3. NPH ILETIN II (PORK) [Suspect]
     Indication: DIABETES MELLITUS
     Dates: start: 19890101, end: 19910101
  4. LASIX [Concomitant]
  5. DIABETA [Concomitant]

REACTIONS (14)
  - CARDIAC FAILURE CONGESTIVE [None]
  - CATARACT [None]
  - CEREBROVASCULAR ACCIDENT [None]
  - EYE DISORDER [None]
  - GANGRENE [None]
  - HEMIPLEGIA [None]
  - IMPAIRED HEALING [None]
  - LEG AMPUTATION [None]
  - LOCALISED INFECTION [None]
  - ONYCHOMADESIS [None]
  - PRURITUS [None]
  - RASH [None]
  - TOE AMPUTATION [None]
  - WHEELCHAIR USER [None]
